FAERS Safety Report 13463143 (Version 1)
Quarter: 2017Q2

REPORT INFORMATION
  Report Type: Report from Study
  Country: BR (occurrence: BR)
  Receive Date: 20170420
  Receipt Date: 20170420
  Transmission Date: 20170830
  Serious: Yes (Hospitalization, Other)
  Sender: FDA-Public Use
  Company Number: BR-AKORN-54923

PATIENT
  Sex: Female
  Weight: 68 kg

DRUGS (1)
  1. COSOPT [Suspect]
     Active Substance: DORZOLAMIDE HYDROCHLORIDE\TIMOLOL MALEATE

REACTIONS (6)
  - Intraocular pressure increased [Recovered/Resolved with Sequelae]
  - Blindness unilateral [Unknown]
  - Hypertension [Not Recovered/Not Resolved]
  - Reaction to preservatives [Not Recovered/Not Resolved]
  - Ocular vascular disorder [Recovered/Resolved with Sequelae]
  - Product use issue [Unknown]
